FAERS Safety Report 7327031-6 (Version None)
Quarter: 2011Q1

REPORT INFORMATION
  Report Type: 
  Country: None (occurrence: None)
  Receive Date: 20110302
  Receipt Date: 20110223
  Transmission Date: 20110831
  Serious: Yes (Other)
  Sender: FDA-Public Use
  Company Number: US-JNJFOC-20110207922

PATIENT
  Sex: Female
  Weight: 130.18 kg

DRUGS (3)
  1. ABILIFY [Concomitant]
  2. REMICADE [Suspect]
     Indication: PSORIASIS
     Route: 042
  3. LIPITOR [Concomitant]

REACTIONS (1)
  - RENAL FAILURE CHRONIC [None]
